FAERS Safety Report 16186662 (Version 2)
Quarter: 2019Q2

REPORT INFORMATION
  Report Type: Spontaneous
  Country: AU (occurrence: AU)
  Receive Date: 20190411
  Receipt Date: 20190514
  Transmission Date: 20190711
  Serious: Yes (Other)
  Sender: FDA-Public Use
  Company Number: AU-GLAXOSMITHKLINE-AU2019GSK062366

PATIENT
  Sex: Female

DRUGS (1)
  1. ASMOL (SALBUTAMOL SULPHATE) [Suspect]
     Active Substance: ALBUTEROL SULFATE
     Indication: PRODUCT USED FOR UNKNOWN INDICATION
     Dosage: UNK
     Route: 055

REACTIONS (3)
  - Dyspnoea [Unknown]
  - Asthma [Unknown]
  - Product complaint [Unknown]

NARRATIVE: CASE EVENT DATE: 20190403
